FAERS Safety Report 12446071 (Version 2)
Quarter: 2023Q1

REPORT INFORMATION
  Report Type: Spontaneous
  Country: FR (occurrence: FR)
  Receive Date: 20160608
  Receipt Date: 20230327
  Transmission Date: 20230417
  Serious: Yes (Death, Hospitalization, Other)
  Sender: FDA-Public Use
  Company Number: None

PATIENT
  Age: 16 Year
  Sex: Female
  Weight: 70 kg

DRUGS (4)
  1. PREDNISOLONE [Suspect]
     Active Substance: PREDNISOLONE
     Indication: Suicide attempt
     Dosage: 20 MILLIGRAM, TOTAL, 20 TABLETS
     Route: 065
     Dates: start: 20130426, end: 20130426
  2. IBUPROFEN [Suspect]
     Active Substance: IBUPROFEN
     Indication: Suicide attempt
     Dosage: 400 MILLIGRAM ONE STRIP
     Route: 065
     Dates: start: 20130426, end: 20130426
  3. COLCHICINE [Suspect]
     Active Substance: COLCHICINE
     Indication: Suicide attempt
     Dosage: 1 MILLIGRAM, 50-60 TABLETS OF 1 MG COLCHICINE (IE A SUPPOSED INGESTED DOSE OF 0.8-0.9 MG/KG)
     Route: 065
     Dates: start: 20130426, end: 20130426
  4. FENOFIBRATE [Suspect]
     Active Substance: FENOFIBRATE
     Indication: Suicide attempt
     Dosage: ONE STRIP
     Route: 065
     Dates: start: 20130426, end: 20130426

REACTIONS (29)
  - Cardiac failure [Fatal]
  - Suicide attempt [Fatal]
  - Acute kidney injury [Fatal]
  - Disseminated intravascular coagulation [Fatal]
  - Ventricular dysfunction [Fatal]
  - Multiple organ dysfunction syndrome [Fatal]
  - Respiratory distress [Fatal]
  - Cardiogenic shock [Fatal]
  - Anuria [Fatal]
  - Metabolic acidosis [Fatal]
  - Somnolence [Fatal]
  - Haemorrhage [Fatal]
  - Hyperleukocytosis [Fatal]
  - Coagulopathy [Fatal]
  - Hypotension [Fatal]
  - Toxicity to various agents [Fatal]
  - Prothrombin time abnormal [Unknown]
  - Systolic dysfunction [Unknown]
  - Diastolic dysfunction [Unknown]
  - Somnolence [Unknown]
  - Thrombocytopenia [Unknown]
  - Vomiting [Unknown]
  - Hepatic cytolysis [Unknown]
  - Acute kidney injury [Unknown]
  - Hypertension [Unknown]
  - Cardiac output decreased [Unknown]
  - Hypotension [Unknown]
  - Overdose [Unknown]
  - Off label use [Unknown]

NARRATIVE: CASE EVENT DATE: 20130426
